FAERS Safety Report 7051817-9 (Version None)
Quarter: 2010Q4

REPORT INFORMATION
  Report Type: 
  Country: None (occurrence: None)
  Receive Date: 20101019
  Receipt Date: 20101007
  Transmission Date: 20110411
  Serious: Yes (Hospitalization)
  Sender: FDA-Public Use
  Company Number: FR-SANOFI-AVENTIS-2010SA060537

PATIENT
  Age: 96 Year
  Sex: Female

DRUGS (7)
  1. LASIX [Suspect]
     Indication: PRODUCT USED FOR UNKNOWN INDICATION
     Dosage: 1 TABLET A DAY IN ALTERNATION WITH HALF A TABLET A DAY
     Route: 048
     Dates: end: 20100828
  2. TRIATEC [Suspect]
     Indication: PRODUCT USED FOR UNKNOWN INDICATION
     Route: 048
     Dates: end: 20100828
  3. HEMIGOXINE NATIVELLE [Suspect]
     Indication: ATRIAL FIBRILLATION
     Route: 048
     Dates: end: 20100828
  4. MEMANTINE HCL [Concomitant]
     Indication: DEMENTIA
     Route: 048
     Dates: start: 20090901
  5. DIFFU K [Concomitant]
     Route: 048
     Dates: end: 20100828
  6. ZOLOFT [Concomitant]
     Route: 048
     Dates: end: 20100828
  7. PREVISCAN [Concomitant]
     Route: 048
     Dates: end: 20100828

REACTIONS (4)
  - CONDITION AGGRAVATED [None]
  - DEHYDRATION [None]
  - OVERDOSE [None]
  - RENAL FAILURE [None]
